FAERS Safety Report 23897596 (Version 2)
Quarter: 2024Q2

REPORT INFORMATION
  Report Type: Spontaneous
  Country: MX (occurrence: MX)
  Receive Date: 20240524
  Receipt Date: 20240621
  Transmission Date: 20240717
  Serious: Yes (Life-Threatening)
  Sender: FDA-Public Use
  Company Number: MX-BAYER-2024A075995

PATIENT
  Age: 34 Year
  Sex: Female
  Weight: 34 kg

DRUGS (9)
  1. ULTRAVIST [Suspect]
     Active Substance: IOPROMIDE
     Indication: Renal injury
     Dosage: 80 ML, ONCE
     Route: 042
     Dates: start: 20240516, end: 20240516
  2. ULTRAVIST [Suspect]
     Active Substance: IOPROMIDE
     Indication: Renal cancer
  3. ULTRAVIST [Suspect]
     Active Substance: IOPROMIDE
     Indication: Computerised tomogram
  4. TACROLIMUS [Concomitant]
     Active Substance: TACROLIMUS
     Dosage: UNK
  5. MYCOPHENOLATE MOFETIL [Concomitant]
     Active Substance: MYCOPHENOLATE MOFETIL
     Dosage: 500 MG, BID
  6. PREDNISONE [Concomitant]
     Active Substance: PREDNISONE
     Dosage: 5 MG, QD
  7. FERROUS FUMARATE 324 [Concomitant]
     Dosage: UNK
  8. LOSARTAN [Concomitant]
     Active Substance: LOSARTAN
     Dosage: 50 MG
  9. AMLODIPINE [Concomitant]
     Active Substance: AMLODIPINE BESYLATE
     Dosage: 5 MG, QD

REACTIONS (5)
  - Tachycardia [Recovered/Resolved]
  - Feeling hot [Recovered/Resolved]
  - Angioedema [Recovered/Resolved]
  - Oedema mouth [Recovered/Resolved]
  - Laryngeal oedema [Recovered/Resolved]

NARRATIVE: CASE EVENT DATE: 20240516
